FAERS Safety Report 9520070 (Version 1)
Quarter: 2013Q1

REPORT INFORMATION
  Report Type: Spontaneous
  Country: US (occurrence: None)
  Receive Date: 20130305
  Receipt Date: 20130305
  Transmission Date: 20140127
  Serious: No
  Sender: FDA-Public Use
  Company Number: 163-21880-12073198

PATIENT
  Age: 66 Year
  Sex: Male

DRUGS (4)
  1. REVLIMID [Suspect]
     Indication: PLASMA CELL MYELOMA
     Dosage: 15MG 1 IN 1 D, PO
     Route: 048
     Dates: start: 201203, end: 2012
  2. LEVOTHYROXINE SODIUM (LEVOTHYROXINE SODIUM) [Concomitant]
  3. LISINOPRIL (LISINOPRIL) [Concomitant]
  4. NIFEDICAL XL (NIFEDIPINE) [Concomitant]

REACTIONS (3)
  - Full blood count decreased [None]
  - Blood test abnormal [None]
  - Neutropenia [None]
